FAERS Safety Report 8057057 (Version 2)
Quarter: 2012Q4

REPORT INFORMATION
  Report Type: 
  Country: US (occurrence: US)
  Receive Date: 20110727
  Receipt Date: 20120920
  Transmission Date: 20130627
  Serious: Yes (Hospitalization, Disabling)
  Sender: FDA-Public Use
  Company Number: US-GLAXOSMITHKLINE-A0653201A

PATIENT
  Age: 57 Year
  Sex: Male

DRUGS (11)
  1. AVANDAMET [Suspect]
     Indication: TYPE 2 DIABETES MELLITUS
     Route: 048
     Dates: start: 200402, end: 200705
  2. AVANDIA [Suspect]
     Indication: DIABETES MELLITUS
     Dosage: 8MG Per day
     Route: 048
     Dates: start: 200504, end: 200607
  3. CRESTOR [Concomitant]
  4. STARLIX [Concomitant]
  5. PLAVIX [Concomitant]
  6. SYNTHROID [Concomitant]
  7. LEXAPRO [Concomitant]
  8. WELLBUTRIN [Concomitant]
  9. LYRICA [Concomitant]
  10. AMBIEN [Concomitant]
  11. METOPROLOL [Concomitant]

REACTIONS (3)
  - Myocardial infarction [Recovering/Resolving]
  - Joint swelling [Unknown]
  - Coronary artery disease [Unknown]
